FAERS Safety Report 18414867 (Version 1)
Quarter: 2020Q4

REPORT INFORMATION
  Report Type: Spontaneous
  Country: US (occurrence: US)
  Receive Date: 20201022
  Receipt Date: 20201022
  Transmission Date: 20210114
  Serious: Yes (Other)
  Sender: FDA-Public Use
  Company Number: US-SA-2020SA297924

PATIENT

DRUGS (1)
  1. PRALUENT [Suspect]
     Active Substance: ALIROCUMAB
     Dosage: 75 MG, Q2W
     Route: 058

REACTIONS (6)
  - Orbital oedema [Unknown]
  - Skin tightness [Unknown]
  - Dyspnoea [Unknown]
  - Ear swelling [Unknown]
  - Visual impairment [Unknown]
  - Lip oedema [Unknown]

NARRATIVE: CASE EVENT DATE: 20201012
